FAERS Safety Report 9524245 (Version 1)
Quarter: 2013Q3

REPORT INFORMATION
  Report Type: Spontaneous
  Country: US (occurrence: None)
  Receive Date: 20130912
  Receipt Date: 20130912
  Transmission Date: 20140515
  Serious: No
  Sender: FDA-Public Use
  Company Number: None

PATIENT
  Age: 70 None
  Sex: Female

DRUGS (3)
  1. HYDROXYCHLOROQUINE [Suspect]
     Indication: ARTHRALGIA
     Dates: start: 20120913, end: 20130701
  2. ALPRAZOLAM [Concomitant]
  3. SERTRALINE [Concomitant]

REACTIONS (1)
  - Skin discolouration [None]
